FAERS Safety Report 6846314-7 (Version None)
Quarter: 2010Q3

REPORT INFORMATION
  Report Type: 
  Country: None (occurrence: None)
  Receive Date: 20100715
  Receipt Date: 20070917
  Transmission Date: 20110219
  Serious: No
  Sender: FDA-Public Use
  Company Number: US-PFIZER INC-2007078462

PATIENT
  Sex: Female
  Weight: 77.3 kg

DRUGS (2)
  1. CHANTIX [Suspect]
     Indication: SMOKING CESSATION THERAPY
     Dates: start: 20070908
  2. VISTARIL [Concomitant]
     Indication: HYPERTENSION

REACTIONS (3)
  - MIDDLE INSOMNIA [None]
  - MUSCULOSKELETAL PAIN [None]
  - RASH [None]
